FAERS Safety Report 4584587-4 (Version None)
Quarter: 2005Q1

REPORT INFORMATION
  Report Type: 
  Country: None (occurrence: None)
  Receive Date: 20050125
  Receipt Date: 20040916
  Transmission Date: 20050727
  Serious: No
  Sender: FDA-Public Use
  Company Number: USA040465641

PATIENT
  Age: 65 Year
  Sex: Female
  Weight: 53 kg

DRUGS (8)
  1. FORTEO [Suspect]
     Indication: OSTEOPOROSIS
     Dosage: 20 UG DAY
     Dates: start: 20040422
  2. NORMAL SALINE [Concomitant]
  3. TOPROL-XL [Concomitant]
  4. ALTACE [Concomitant]
  5. GLUCOSAMINE CHONDROITIN [Suspect]
  6. FISH OIL [Concomitant]
  7. CITRACAL (CALCIUM CITRATE) [Concomitant]
  8. FOLIC ACID [Concomitant]

REACTIONS (5)
  - HEART RATE DECREASED [None]
  - HYPOTENSION [None]
  - INJECTION SITE HAEMORRHAGE [None]
  - MEDICATION ERROR [None]
  - RASH [None]
